FAERS Safety Report 16564971 (Version 2)
Quarter: 2019Q3

REPORT INFORMATION
  Report Type: Spontaneous
  Country: US (occurrence: US)
  Receive Date: 20190712
  Receipt Date: 20190816
  Transmission Date: 20191004
  Serious: No
  Sender: FDA-Public Use
  Company Number: US-ASTRAZENECA-2019SE89017

PATIENT
  Sex: Female

DRUGS (1)
  1. PULMICORT FLEXHALER [Suspect]
     Active Substance: BUDESONIDE
     Dosage: 90.0UG UNKNOWN
     Route: 055

REACTIONS (5)
  - Device issue [Unknown]
  - Asthma [Unknown]
  - Wrong technique in device usage process [Unknown]
  - Taste disorder [Unknown]
  - Intentional device misuse [Unknown]
